FAERS Safety Report 9033235 (Version 1)
Quarter: 2013Q1

REPORT INFORMATION
  Report Type: Spontaneous
  Country: DE (occurrence: DE)
  Receive Date: 20130128
  Receipt Date: 20130128
  Transmission Date: 20140127
  Serious: Yes (Hospitalization, Other)
  Sender: FDA-Public Use
  Company Number: DE-AMGEN-DEUSP2010008499

PATIENT
  Age: 50 Year
  Sex: Female

DRUGS (1)
  1. ENBREL FERTIGSPRITZE [Suspect]
     Indication: PSORIATIC ARTHROPATHY
     Dosage: 50 MG, WEEKLY
     Dates: start: 20100615

REACTIONS (2)
  - Hip arthroplasty [Unknown]
  - Hypertension [Unknown]
